FAERS Safety Report 9615042 (Version 1)
Quarter: 2013Q4

REPORT INFORMATION
  Report Type: Spontaneous
  Country: US (occurrence: US)
  Receive Date: 20131011
  Receipt Date: 20131011
  Transmission Date: 20140711
  Serious: No
  Sender: FDA-Public Use
  Company Number: US-PFIZER INC-2013288824

PATIENT
  Age: 72 Year
  Sex: Female

DRUGS (11)
  1. SUTENT [Suspect]
     Indication: SOFT TISSUE CANCER
     Dosage: STRENGTH 25 MG
     Dates: start: 20130905
  2. AUGMENTIN [Concomitant]
     Dosage: UNK
  3. FAMVIR [Concomitant]
     Dosage: UNK
  4. FLUOXETINE HCL [Concomitant]
     Dosage: UNK
  5. GABAPENTIN [Concomitant]
     Dosage: UNK
  6. KLOR-CON [Concomitant]
     Dosage: UNK
  7. LANSOPRAZOL [Concomitant]
     Dosage: UNK
  8. LEVOTHYROXINE SODIUM [Concomitant]
     Dosage: UNK
  9. MUCINEX [Concomitant]
     Dosage: UNK
  10. ONDANSETRON HCL [Concomitant]
     Dosage: UNK
  11. PROMETHAZINE HCL [Concomitant]
     Dosage: UNK

REACTIONS (3)
  - Off label use [Unknown]
  - Disease progression [Unknown]
  - Soft tissue cancer [Unknown]
